FAERS Safety Report 21399892 (Version 1)
Quarter: 2022Q4

REPORT INFORMATION
  Report Type: Spontaneous
  Country: US (occurrence: US)
  Receive Date: 20221002
  Receipt Date: 20221002
  Transmission Date: 20230113
  Serious: No
  Sender: FDA-Public Use
  Company Number: None

PATIENT
  Age: 67 Year
  Sex: Male
  Weight: 81.65 kg

DRUGS (5)
  1. VASCEPA [Suspect]
     Active Substance: ICOSAPENT ETHYL
     Indication: Cardiovascular event prophylaxis
     Dosage: FREQUENCY TEXT : TWO IN THE AM AND TWO IN THE PM
     Route: 048
     Dates: start: 2020, end: 20211015
  2. VASCEPA [Suspect]
     Active Substance: ICOSAPENT ETHYL
     Indication: Vascular graft
  3. REPATHA [Concomitant]
     Active Substance: EVOLOCUMAB
     Indication: Blood cholesterol increased
     Dosage: FREQUENCY TEXT : EVERY OTHER WEEK
  4. PRAVASTATIN [Concomitant]
     Active Substance: PRAVASTATIN
     Indication: Blood cholesterol increased
     Dosage: FREQUENCY TEXT : EVERY OTHER DAY
  5. EZETIMIBE [Concomitant]
     Active Substance: EZETIMIBE
     Indication: Blood cholesterol increased
     Dosage: FREQUENCY TEXT : EVERY DAY

REACTIONS (4)
  - Eructation [Recovered/Resolved]
  - Product taste abnormal [Recovered/Resolved]
  - Product adhesion issue [Unknown]
  - Product odour abnormal [Unknown]

NARRATIVE: CASE EVENT DATE: 20211015
